FAERS Safety Report 9267309 (Version 4)
Quarter: 2014Q2

REPORT INFORMATION
  Report Type: Report from Study
  Country: US (occurrence: US)
  Receive Date: 20130502
  Receipt Date: 20140506
  Transmission Date: 20141212
  Serious: Yes (Life-Threatening, Hospitalization, Other)
  Sender: FDA-Public Use
  Company Number: PHEH2013US009581

PATIENT
  Age: 57 Year
  Sex: Male
  Weight: 135.15 kg

DRUGS (7)
  1. DIOVAN [Suspect]
     Dosage: 1 DF (320 MG), QD
     Route: 048
  2. LOSARTAN [Suspect]
     Dosage: UNK UKN, UNK
     Dates: start: 20100920
  3. ASPIRIN [Suspect]
     Dosage: 81 MG, UNK
  4. BUPROPION [Concomitant]
     Dosage: 150 MG, UNK
  5. METOPROLOL [Concomitant]
     Dosage: 50 MG, UNK
  6. METFORMIN [Concomitant]
     Dosage: 1000 MG, UNK
  7. AMLODIPINE [Concomitant]
     Dosage: 10 MG, UNK

REACTIONS (14)
  - Cerebrovascular accident [Not Recovered/Not Resolved]
  - Sensory loss [Unknown]
  - Coordination abnormal [Unknown]
  - Vision blurred [Unknown]
  - Dysarthria [Unknown]
  - Gait disturbance [Unknown]
  - Hypokinesia [Unknown]
  - Blood glucose increased [Unknown]
  - Glycosylated haemoglobin increased [Unknown]
  - Memory impairment [Unknown]
  - Blindness unilateral [Unknown]
  - Visual acuity reduced [Unknown]
  - Alanine aminotransferase increased [Unknown]
  - Aspartate aminotransferase increased [Unknown]
